FAERS Safety Report 6394373-0 (Version None)
Quarter: 2009Q4

REPORT INFORMATION
  Report Type: 
  Country: None (occurrence: None)
  Receive Date: 20091006
  Receipt Date: 20090930
  Transmission Date: 20100525
  Serious: Yes (Other)
  Sender: FDA-Public Use
  Company Number: GXKR2009DE10770

PATIENT
  Age: 71 Year
  Sex: Female

DRUGS (1)
  1. METFORMIN HEXAL (NGX) (METFORMIN) FILM-COATED TABLET, 1000MG [Suspect]
     Dosage: 1000 MG, ORAL
     Route: 048

REACTIONS (4)
  - ABDOMINAL PAIN [None]
  - CHROMATURIA [None]
  - NAUSEA [None]
  - SYNCOPE [None]
